FAERS Safety Report 8870020 (Version 1)
Quarter: 2012Q4

REPORT INFORMATION
  Report Type: 
  Country: US (occurrence: None)
  Receive Date: 20121025
  Receipt Date: 20121025
  Transmission Date: 20130627
  Serious: Yes (Hospitalization)
  Sender: FDA-Public Use
  Company Number: None

PATIENT
  Sex: Female
  Weight: 90 kg

DRUGS (4)
  1. CARBOPLATIN [Suspect]
     Dosage: 2734 mg
     Dates: end: 20110427
  2. CYCLOPHOSPHAMIDE [Suspect]
     Dosage: 4280 mg
     Dates: end: 20110706
  3. DOXORUBICIN HYDROCHLORIDE [Suspect]
     Dosage: 430 mg
     Dates: end: 20110706
  4. PACLITAXEL (TAXOL) [Suspect]
     Dosage: 1600 mg
     Dates: end: 20110504

REACTIONS (3)
  - Upper respiratory tract infection [None]
  - Pancytopenia [None]
  - Acute myeloid leukaemia [None]
